FAERS Safety Report 7113279-2 (Version None)
Quarter: 2010Q4

REPORT INFORMATION
  Report Type: 
  Country: None (occurrence: None)
  Receive Date: 20101119
  Receipt Date: 20100604
  Transmission Date: 20110411
  Serious: No
  Sender: FDA-Public Use
  Company Number: A0863073A

PATIENT
  Age: 40 Year
  Sex: Female

DRUGS (5)
  1. BUPROPION HYDROCHLORIDE [Suspect]
     Indication: DEPRESSION
     Dosage: 150MG TWICE PER DAY
     Route: 048
     Dates: start: 20100301, end: 20100531
  2. TRAZODONE HCL [Concomitant]
  3. KLONOPIN [Concomitant]
  4. METOPROLOL [Concomitant]
  5. HYDROCHLOROTHIAZIDE [Concomitant]

REACTIONS (6)
  - ABDOMINAL PAIN UPPER [None]
  - DEPRESSION [None]
  - FATIGUE [None]
  - ILL-DEFINED DISORDER [None]
  - NAUSEA [None]
  - VOMITING [None]
